FAERS Safety Report 25686758 (Version 2)
Quarter: 2025Q4

REPORT INFORMATION
  Report Type: Spontaneous
  Country: EU (occurrence: EU)
  Receive Date: 20250816
  Receipt Date: 20251003
  Transmission Date: 20260118
  Serious: Yes (Life-Threatening, Disabling, Other)
  Sender: AUROBINDO
  Company Number: EU-MINISAL02-1052347

PATIENT
  Age: 78 Year
  Sex: Male
  Weight: 60 kg

DRUGS (2)
  1. APIXABAN [Suspect]
     Active Substance: APIXABAN
     Indication: Atrial fibrillation
     Dosage: 10 MILLIGRAM, ONCE A DAY (APIXABAN 5MG MORNING AND EVENING)
     Route: 048
     Dates: start: 20250717, end: 20250726
  2. APIXABAN [Suspect]
     Active Substance: APIXABAN
     Indication: Ischaemic stroke

REACTIONS (3)
  - Cerebral haemorrhage [Unknown]
  - Hemiparesis [Recovering/Resolving]
  - Aphasia [Not Recovered/Not Resolved]

NARRATIVE: CASE EVENT DATE: 20250727
